FAERS Safety Report 11307196 (Version 1)
Quarter: 2015Q3

REPORT INFORMATION
  Report Type: Spontaneous
  Country: FR (occurrence: FR)
  Receive Date: 20150723
  Receipt Date: 20150723
  Transmission Date: 20151125
  Serious: Yes (Hospitalization)
  Sender: FDA-Public Use
  Company Number: FR-BAXTER-2015BAX038881

PATIENT
  Age: 23 Year
  Sex: Male

DRUGS (2)
  1. IFOSFAMIDE EG [Suspect]
     Active Substance: IFOSFAMIDE
     Indication: CHEMOTHERAPY
     Route: 042
     Dates: start: 20141110
  2. UROMITEXAN 5 G/50 ML, SOLUTION INJECTABLE POUR PERFUSION EN FLACON [Suspect]
     Active Substance: MESNA
     Indication: CHEMOTHERAPY
     Route: 065
     Dates: start: 201411

REACTIONS (1)
  - Encephalopathy [Recovered/Resolved]

NARRATIVE: CASE EVENT DATE: 20141112
